FAERS Safety Report 14305797 (Version 1)
Quarter: 2017Q4

REPORT INFORMATION
  Report Type: Spontaneous
  Country: US (occurrence: US)
  Receive Date: 20171219
  Receipt Date: 20171219
  Transmission Date: 20180321
  Serious: No
  Sender: FDA-Public Use
  Company Number: US-SEPTODONT-201703952

PATIENT
  Age: 3 Decade
  Sex: Female

DRUGS (1)
  1. POLOCAINE [Suspect]
     Active Substance: MEPIVACAINE HYDROCHLORIDE
     Indication: LOCAL ANAESTHESIA
     Dosage: 1/5 OF CARTRIDGE
     Route: 050

REACTIONS (2)
  - Off label use [Unknown]
  - Syncope [Recovered/Resolved]
